FAERS Safety Report 5953539-1 (Version None)
Quarter: 2008Q4

REPORT INFORMATION
  Report Type: 
  Country: None (occurrence: None)
  Receive Date: 20081114
  Receipt Date: 20081107
  Transmission Date: 20090506
  Serious: Yes (Other)
  Sender: FDA-Public Use
  Company Number: NL-ASTRAZENECA-2008AC01817

PATIENT
  Age: 918 Month
  Sex: Male

DRUGS (1)
  1. NAROPIN [Suspect]
     Indication: LOCAL ANAESTHESIA
     Dates: start: 20080708, end: 20080708

REACTIONS (5)
  - AKATHISIA [None]
  - AREFLEXIA [None]
  - CONVULSION [None]
  - HYPOAESTHESIA [None]
  - VOMITING [None]
